FAERS Safety Report 8099430-9 (Version None)
Quarter: 2012Q1

REPORT INFORMATION
  Report Type: 
  Country: None (occurrence: None)
  Receive Date: 20120129
  Receipt Date: 20111005
  Transmission Date: 20120608
  Serious: No
  Sender: FDA-Public Use
  Company Number: US-ABBOTT-11P-163-0861479-00

PATIENT
  Age: 31 Year
  Sex: Female

DRUGS (5)
  1. HUMIRA [Suspect]
     Indication: CROHN'S DISEASE
     Dates: start: 20110401
  2. PENTASA [Concomitant]
     Indication: PRODUCT USED FOR UNKNOWN INDICATION
  3. UNKNOWN MEDICATION [Concomitant]
     Indication: CROHN'S DISEASE
     Dosage: EVERY MORNING
  4. DOXEPIN [Concomitant]
     Indication: DEPRESSION
  5. XANAX [Concomitant]
     Indication: ANXIETY

REACTIONS (3)
  - INJECTION SITE PAIN [None]
  - INJECTION SITE SWELLING [None]
  - INJECTION SITE HAEMATOMA [None]
